FAERS Safety Report 4285925-2 (Version None)
Quarter: 2004Q1

REPORT INFORMATION
  Report Type: 
  Country: None (occurrence: None)
  Receive Date: 20040205
  Receipt Date: 20040123
  Transmission Date: 20041129
  Serious: Yes (Hospitalization)
  Sender: FDA-Public Use
  Company Number: ES-GLAXOSMITHKLINE-B0321035A

PATIENT
  Age: 48 Year
  Sex: Male

DRUGS (3)
  1. ABACAVIR SULPHATE [Suspect]
     Indication: DRUG USE FOR UNKNOWN INDICATION
     Dosage: 600MG TWICE PER DAY
     Route: 048
     Dates: start: 20031126, end: 20031214
  2. TENOFOVIR [Concomitant]
     Indication: DRUG USE FOR UNKNOWN INDICATION
     Dosage: 490MG TWICE PER DAY
     Route: 048
     Dates: start: 20031126, end: 20031214
  3. LOPINAVIR [Concomitant]
     Indication: DRUG USE FOR UNKNOWN INDICATION
     Route: 048
     Dates: start: 20031126, end: 20031214

REACTIONS (8)
  - ASTHENIA [None]
  - CHILLS [None]
  - CONVULSION [None]
  - DIARRHOEA [None]
  - DRUG HYPERSENSITIVITY [None]
  - HYPERSENSITIVITY [None]
  - PYREXIA [None]
  - RASH [None]
